FAERS Safety Report 7532171-2 (Version None)
Quarter: 2011Q2

REPORT INFORMATION
  Report Type: 
  Country: None (occurrence: None)
  Receive Date: 20110608
  Receipt Date: 20110606
  Transmission Date: 20111010
  Serious: No
  Sender: FDA-Public Use
  Company Number: US-PFIZER INC-2011123180

PATIENT
  Sex: Female
  Weight: 63.492 kg

DRUGS (4)
  1. PREVACID [Concomitant]
     Indication: DYSPEPSIA
     Dosage: 30 MG, DAILY
     Route: 048
  2. ZOCOR [Concomitant]
     Indication: BLOOD CHOLESTEROL INCREASED
     Dosage: 20 MG, DAILY
     Route: 048
  3. ESTRING [Suspect]
     Indication: MENOPAUSAL SYMPTOMS
     Dosage: EVERY THREE MONTHS
     Route: 067
  4. MIACALCIN [Concomitant]
     Indication: BONE DISORDER
     Dosage: UNK
     Route: 045

REACTIONS (1)
  - DRUG INEFFECTIVE [None]
